FAERS Safety Report 5229782-6 (Version None)
Quarter: 2007Q1

REPORT INFORMATION
  Report Type: 
  Country: None (occurrence: None)
  Receive Date: 20070206
  Receipt Date: 20070124
  Transmission Date: 20070707
  Serious: Yes (Hospitalization)
  Sender: FDA-Public Use
  Company Number: JP-PFIZER INC-2006155104

PATIENT
  Sex: Female
  Weight: 96.4 kg

DRUGS (16)
  1. DALACIN S [Suspect]
     Indication: PNEUMONIA
     Route: 042
     Dates: start: 20061211, end: 20061215
  2. MEROPEN [Suspect]
     Indication: SEPSIS
     Route: 042
     Dates: start: 20061207, end: 20061213
  3. GASTER OD [Concomitant]
     Route: 048
  4. GASTER [Concomitant]
     Route: 042
     Dates: start: 20061207, end: 20061212
  5. ALBUMINAR [Concomitant]
     Route: 042
     Dates: start: 20061207, end: 20061209
  6. LASIX [Concomitant]
     Route: 042
     Dates: start: 20061212, end: 20061215
  7. ANTHROBIN P [Concomitant]
     Route: 042
     Dates: start: 20061208, end: 20061211
  8. DOBUTREX [Concomitant]
     Route: 042
     Dates: start: 20061209, end: 20061212
  9. FOY [Concomitant]
     Route: 042
     Dates: start: 20061207, end: 20061212
  10. GLOVENIN [Concomitant]
     Route: 042
  11. PENTCILLIN [Concomitant]
     Route: 042
  12. TIENAM [Concomitant]
     Route: 042
     Dates: start: 20061214, end: 20061226
  13. DOPAMINE HCL [Concomitant]
     Route: 042
     Dates: start: 20061209, end: 20061221
  14. PROPOFOL [Concomitant]
     Route: 042
     Dates: start: 20061207, end: 20061224
  15. FENTANYL TRANSDERMAL SYSTEM [Concomitant]
     Route: 042
     Dates: start: 20061207, end: 20061211
  16. GLOVENIN I [Concomitant]
     Dates: start: 20061207, end: 20061208

REACTIONS (1)
  - ACUTE GENERALISED EXANTHEMATOUS PUSTULOSIS [None]
